FAERS Safety Report 8211040-9 (Version None)
Quarter: 2012Q1

REPORT INFORMATION
  Report Type: 
  Country: None (occurrence: None)
  Receive Date: 20120315
  Receipt Date: 20120309
  Transmission Date: 20120608
  Serious: Yes (Other)
  Sender: FDA-Public Use
  Company Number: PHHY2012FR021483

PATIENT
  Age: 71 Year
  Sex: Male

DRUGS (5)
  1. INSULIN [Concomitant]
  2. STALEVO 100 [Suspect]
     Indication: PARKINSON'S DISEASE
     Dosage: ONE TABLET 200/125/31.25 MG ON MORNINGS
     Route: 048
  3. STALEVO 100 [Suspect]
     Dosage: ONE TABLET 200/100/25 MG THREE TIMES DAILY 1 DF, TID
     Route: 048
  4. INDAPAMIDE [Concomitant]
  5. ATACAND [Concomitant]

REACTIONS (5)
  - DELIRIUM [None]
  - CONFUSIONAL STATE [None]
  - HYPOGLYCAEMIA [None]
  - EUPHORIC MOOD [None]
  - AGITATION [None]
